FAERS Safety Report 21892345 (Version 1)
Quarter: 2023Q1

REPORT INFORMATION
  Report Type: Report from Study
  Country: US (occurrence: US)
  Receive Date: 20230120
  Receipt Date: 20230120
  Transmission Date: 20230417
  Serious: Yes (Other)
  Sender: FDA-Public Use
  Company Number: US-JAZZ-2022-US-034373

PATIENT
  Sex: Female

DRUGS (3)
  1. XYREM [Suspect]
     Active Substance: SODIUM OXYBATE
     Indication: Narcolepsy
     Dosage: 3-4 GRAMS OF XYWAV TWICE NIGHTLY
  2. XYREM [Suspect]
     Active Substance: SODIUM OXYBATE
     Indication: Cataplexy
     Dosage: 3 GRAM, BID
  3. XYREM [Suspect]
     Active Substance: SODIUM OXYBATE
     Indication: Somnolence

REACTIONS (10)
  - Shoulder arthroplasty [Unknown]
  - Cataplexy [Unknown]
  - Fall [Unknown]
  - Hallucination [Unknown]
  - Sleep talking [Unknown]
  - Somnambulism [Unknown]
  - Weight decreased [Unknown]
  - Ligament sprain [Unknown]
  - Abnormal dreams [Unknown]
  - Intentional product use issue [Unknown]
